FAERS Safety Report 24783664 (Version 2)
Quarter: 2025Q3

REPORT INFORMATION
  Report Type: Spontaneous
  Country: GB (occurrence: GB)
  Receive Date: 20241227
  Receipt Date: 20250809
  Transmission Date: 20251020
  Serious: Yes (Other)
  Sender: ALEXION PHARMACEUTICALS
  Company Number: GB-MHRA-EMIS-12001-802c23ac-3e09-4be7-a8b2-0afbf7f7d585

PATIENT
  Age: 74 Year
  Sex: Female
  Weight: 64 kg

DRUGS (2)
  1. DAPAGLIFLOZIN [Suspect]
     Active Substance: DAPAGLIFLOZIN
     Dosage: ONE TO BE TAKEN DAILY
     Route: 065
     Dates: start: 20240816, end: 20241107
  2. SPIKEVAX [Suspect]
     Active Substance: CX-046684

REACTIONS (1)
  - Muscular weakness [Unknown]
